FAERS Safety Report 23476595 (Version 1)
Quarter: 2024Q1

REPORT INFORMATION
  Report Type: Spontaneous
  Country: GB (occurrence: GB)
  Receive Date: 20240204
  Receipt Date: 20240204
  Transmission Date: 20240409
  Serious: No
  Sender: FDA-Public Use
  Company Number: GB-MHRA-MED-202305041647405710-QZDKN

PATIENT
  Sex: Female

DRUGS (1)
  1. CABOMETYX [Suspect]
     Active Substance: CABOZANTINIB S-MALATE
     Indication: Evidence based treatment
     Dosage: 140 MG, QD
     Route: 065

REACTIONS (1)
  - Excessive cerumen production [Not Recovered/Not Resolved]

NARRATIVE: CASE EVENT DATE: 20230409
